FAERS Safety Report 11970051 (Version 1)
Quarter: 2016Q1

REPORT INFORMATION
  Report Type: Spontaneous
  Country: US (occurrence: None)
  Receive Date: 20160126
  Receipt Date: 20160126
  Transmission Date: 20160526
  Serious: No
  Sender: FDA-Public Use
  Company Number: None

PATIENT
  Age: 49 Year
  Sex: Male

DRUGS (1)
  1. HUMIRA [Suspect]
     Active Substance: ADALIMUMAB
     Indication: CROHN^S DISEASE
     Dosage: 40MG WEEKLY SUBCUTANEOUS INJECTION
     Route: 058
     Dates: start: 20151008, end: 20160119

REACTIONS (9)
  - Pain in extremity [None]
  - Headache [None]
  - Gait disturbance [None]
  - Dyspnoea [None]
  - Pulmonary congestion [None]
  - Sinus operation [None]
  - Asthma [None]
  - Chills [None]
  - Influenza like illness [None]

NARRATIVE: CASE EVENT DATE: 20160119
